FAERS Safety Report 6705354-9 (Version None)
Quarter: 2010Q2

REPORT INFORMATION
  Report Type: 
  Country: None (occurrence: None)
  Receive Date: 20100502
  Receipt Date: 20100420
  Transmission Date: 20101027
  Serious: Yes (Hospitalization)
  Sender: FDA-Public Use
  Company Number: DE-BRISTOL-MYERS SQUIBB COMPANY-15071145

PATIENT
  Age: 49 Year
  Sex: Female

DRUGS (2)
  1. TRIAMCINOLONE ACETONIDE [Suspect]
     Indication: BACK PAIN
  2. ALCOHOL [Suspect]

REACTIONS (4)
  - ADRENAL INSUFFICIENCY [None]
  - CONVULSION [None]
  - HYPOGLYCAEMIA [None]
  - HYPONATRAEMIA [None]
